FAERS Safety Report 7037721-0 (Version None)
Quarter: 2010Q4

REPORT INFORMATION
  Report Type: 
  Country: None (occurrence: None)
  Receive Date: 20101011
  Receipt Date: 20101001
  Transmission Date: 20110411
  Serious: Yes (Death)
  Sender: FDA-Public Use
  Company Number: JP-MERCK-1010USA00469

PATIENT
  Age: 79 Year
  Sex: Female

DRUGS (11)
  1. JANUVIA [Suspect]
     Indication: TYPE 2 DIABETES MELLITUS
     Route: 048
     Dates: start: 20091110, end: 20100323
  2. VOLTAREN [Suspect]
     Route: 048
  3. METFORMIN HCL [Concomitant]
     Route: 065
  4. STARSIS [Concomitant]
     Route: 065
  5. FOSAMAX [Concomitant]
     Route: 065
  6. MICARDIS [Concomitant]
     Route: 065
  7. METHYCOBAL [Concomitant]
     Route: 065
  8. FERROMIA [Concomitant]
     Route: 065
  9. FUROSEMIDE [Concomitant]
     Route: 065
  10. ASPIRIN [Concomitant]
     Route: 065
  11. CONIEL [Concomitant]
     Route: 065

REACTIONS (1)
  - HEPATIC CANCER METASTATIC [None]
